FAERS Safety Report 21793535 (Version 2)
Quarter: 2023Q1

REPORT INFORMATION
  Report Type: Report from Study
  Country: NL (occurrence: NL)
  Receive Date: 20221229
  Receipt Date: 20230106
  Transmission Date: 20230418
  Serious: Yes (Other)
  Sender: FDA-Public Use
  Company Number: NL-ABBVIE-4222075

PATIENT
  Sex: Female

DRUGS (8)
  1. CARBIDOPA\LEVODOPA [Suspect]
     Active Substance: CARBIDOPA\LEVODOPA
     Indication: Parkinson^s disease
     Dosage: REMAINS AT 16 HOURS
     Route: 050
     Dates: start: 20160704
  2. CARBIDOPA\LEVODOPA [Suspect]
     Active Substance: CARBIDOPA\LEVODOPA
     Dosage: MD: 8.5 ML, CD: 2.0 ML/H, ED: 2.0 ML?REMAINS AT 16 HOURS
     Route: 050
  3. BENSERAZIDE HYDROCHLORIDE\LEVODOPA [Concomitant]
     Active Substance: BENSERAZIDE HYDROCHLORIDE\LEVODOPA
     Indication: Parkinson^s disease
     Dosage: 1 OR 2 A NIGHT/ONCE A DAY IF REQ.
     Route: 048
  4. LEVODOPA [Concomitant]
     Active Substance: LEVODOPA
     Indication: Parkinson^s disease
  5. SINEMET [Concomitant]
     Active Substance: CARBIDOPA\LEVODOPA
     Indication: Parkinson^s disease
     Dosage: ONCE A DAY 3 TABLETS (375MG)
  6. CARBIDOPA\LEVODOPA [Concomitant]
     Active Substance: CARBIDOPA\LEVODOPA
     Indication: Product used for unknown indication
  7. CARBIDOPA\LEVODOPA [Concomitant]
     Active Substance: CARBIDOPA\LEVODOPA
     Indication: Product used for unknown indication
  8. NEUPRO [Concomitant]
     Active Substance: ROTIGOTINE
     Indication: Parkinson^s disease

REACTIONS (11)
  - Medical device implantation [Not Recovered/Not Resolved]
  - Dyskinesia [Not Recovered/Not Resolved]
  - Therapeutic product effect variable [Not Recovered/Not Resolved]
  - Nerve compression [Not Recovered/Not Resolved]
  - Bradykinesia [Not Recovered/Not Resolved]
  - Arthralgia [Not Recovered/Not Resolved]
  - Memory impairment [Not Recovered/Not Resolved]
  - Device difficult to use [Not Recovered/Not Resolved]
  - Pain [Unknown]
  - Nocturia [Not Recovered/Not Resolved]
  - On and off phenomenon [Not Recovered/Not Resolved]
